FAERS Safety Report 12472299 (Version 3)
Quarter: 2017Q1

REPORT INFORMATION
  Report Type: Report from Study
  Country: US (occurrence: US)
  Receive Date: 20160616
  Receipt Date: 20170303
  Transmission Date: 20170428
  Serious: Yes (Hospitalization, Other)
  Sender: FDA-Public Use
  Company Number: US-ACTELION-A-US2016-134670

PATIENT
  Age: 83 Year
  Sex: Female

DRUGS (2)
  1. ADCIRCA [Concomitant]
     Active Substance: TADALAFIL
  2. TRACLEER [Suspect]
     Active Substance: BOSENTAN
     Indication: PULMONARY ARTERIAL HYPERTENSION
     Dosage: 125 MG, BID
     Route: 048
     Dates: start: 20020912

REACTIONS (7)
  - Bronchitis [Unknown]
  - Productive cough [Unknown]
  - Pneumonia [Unknown]
  - Acute kidney injury [Unknown]
  - Blood count abnormal [Unknown]
  - Transfusion [Unknown]
  - Haemoptysis [Unknown]

NARRATIVE: CASE EVENT DATE: 201606
